FAERS Safety Report 4813148-4 (Version None)
Quarter: 2005Q4

REPORT INFORMATION
  Report Type: 
  Country: None (occurrence: None)
  Receive Date: 20051028
  Receipt Date: 20050620
  Transmission Date: 20060501
  Serious: No
  Sender: FDA-Public Use
  Company Number: US-GLAXOSMITHKLINE-A0563386A

PATIENT
  Age: 63 Year
  Sex: Female

DRUGS (19)
  1. ADVAIR DISKUS 100/50 [Suspect]
     Indication: ASTHMA
     Dosage: 1PUFF TWICE PER DAY
     Route: 055
     Dates: start: 20050303
  2. OMEPRAZOLE [Concomitant]
  3. FLUCONAZOLE [Concomitant]
  4. TRIAMTERENE [Concomitant]
  5. DIOVAN HCT [Concomitant]
  6. TOPROL-XL [Concomitant]
  7. PREDNISONE [Concomitant]
  8. ASPIRIN [Concomitant]
  9. OXYBUTYNIN [Concomitant]
  10. ALBUTEROL [Concomitant]
  11. FUROSEMIDE [Concomitant]
  12. TYLENOL ARTHRITIS [Concomitant]
  13. CALCIUM GLUCONATE [Concomitant]
  14. MULTI-VITAMIN [Concomitant]
  15. MAGNESIUM GLUCONATE [Concomitant]
  16. ASCORBIC ACID [Concomitant]
  17. IMODIUM [Concomitant]
  18. UNKNOWN MEDICATION [Concomitant]
  19. HYDROCHLOROTHIAZIDE [Concomitant]

REACTIONS (4)
  - ASTHENIA [None]
  - FUNGAL OESOPHAGITIS [None]
  - OEDEMA PERIPHERAL [None]
  - PHARMACEUTICAL PRODUCT COMPLAINT [None]
